FAERS Safety Report 24630802 (Version 2)
Quarter: 2024Q4

REPORT INFORMATION
  Report Type: Spontaneous
  Country: US (occurrence: US)
  Receive Date: 20241118
  Receipt Date: 20241219
  Transmission Date: 20250114
  Serious: Yes (Death)
  Sender: PFIZER
  Company Number: US-PFIZER INC-202300361900

PATIENT
  Age: 76 Year
  Sex: Male

DRUGS (6)
  1. MEKTOVI [Suspect]
     Active Substance: BINIMETINIB
     Indication: Metastatic malignant melanoma
     Dosage: TAKE 1 TABLET (15 MG TOTAL) BY MOUTH EVERY MORNING AND 2 TABLETS (30 MG TOTAL) EVERY NIGHT
     Route: 048
     Dates: start: 20231108
  2. MEKTOVI [Suspect]
     Active Substance: BINIMETINIB
     Dosage: TAKE 1 TABLET (15 MG TOTAL) BY MOUTH TWICE DAILY
     Route: 048
  3. MEKTOVI [Suspect]
     Active Substance: BINIMETINIB
     Dosage: 1 TABLET (15 MG TOTAL) BY MOUTH TWICE DAILY
     Route: 048
  4. BRAFTOVI [Suspect]
     Active Substance: ENCORAFENIB
     Indication: Metastatic malignant melanoma
     Dosage: TAKE 1 TABLET (75MG) DAILY IN THE MORNING AND 2 TABLETS (150 MG) IN THE EVENING
     Route: 048
     Dates: start: 20231108
  5. BRAFTOVI [Suspect]
     Active Substance: ENCORAFENIB
     Dosage: TAKE 1 TABLET (75 MG TOTAL) BY MOUTH TWICE DAILY
     Route: 048
  6. BRAFTOVI [Suspect]
     Active Substance: ENCORAFENIB
     Dosage: TAKE 2 CAPSULE (150 MG TOTAL) BY MOUTH IN THE MORNING
     Route: 048

REACTIONS (2)
  - Death [Fatal]
  - Off label use [Unknown]

NARRATIVE: CASE EVENT DATE: 20231108
